FAERS Safety Report 8840788 (Version 1)
Quarter: 2012Q4

REPORT INFORMATION
  Report Type: 
  Country: IT (occurrence: IT)
  Receive Date: 20121015
  Receipt Date: 20121015
  Transmission Date: 20130627
  Serious: Yes (Hospitalization)
  Sender: FDA-Public Use
  Company Number: PHHY2012IT089677

PATIENT
  Sex: Male

DRUGS (3)
  1. DIAZEPAM [Suspect]
  2. LORAZEPAM [Suspect]
  3. OLANZAPINE [Suspect]

REACTIONS (1)
  - Rhabdomyolysis [Recovering/Resolving]
